FAERS Safety Report 9817945 (Version 1)
Quarter: 2014Q1

REPORT INFORMATION
  Report Type: Spontaneous
  Country: US (occurrence: None)
  Receive Date: 20140110
  Receipt Date: 20140110
  Transmission Date: 20141002
  Serious: Yes (Hospitalization)
  Sender: FDA-Public Use
  Company Number: None

PATIENT
  Sex: Female

DRUGS (9)
  1. FORTEO 600 MCG LILLY [Suspect]
     Route: 058
     Dates: start: 20131003
  2. PROAIR [Concomitant]
  3. SYMBICORT [Concomitant]
  4. NEXIUM [Concomitant]
  5. CENTRUM [Concomitant]
  6. IRON [Concomitant]
  7. XANAX [Concomitant]
  8. AMBIEN [Concomitant]
  9. BENICAR [Concomitant]

REACTIONS (2)
  - Cardiac disorder [None]
  - Dyspnoea [None]
